FAERS Safety Report 8578020-5 (Version None)
Quarter: 2012Q3

REPORT INFORMATION
  Report Type: 
  Country: None (occurrence: None)
  Receive Date: 20120726
  Receipt Date: 20120717
  Transmission Date: 20120928
  Serious: Yes (Other)
  Sender: FDA-Public Use
  Company Number: 2012SA051042

PATIENT
  Age: 49 Year
  Sex: Female

DRUGS (1)
  1. CAPZASIN [Suspect]
     Dosage: DAILY
     Dates: start: 20120714

REACTIONS (5)
  - URTICARIA [None]
  - OCULAR HYPERAEMIA [None]
  - EYE PRURITUS [None]
  - VISUAL IMPAIRMENT [None]
  - CHEMICAL BURN OF SKIN [None]
